FAERS Safety Report 5060752-7 (Version None)
Quarter: 2006Q3

REPORT INFORMATION
  Report Type: 
  Country: None (occurrence: None)
  Receive Date: 20060725
  Receipt Date: 20060623
  Transmission Date: 20061208
  Serious: Yes (Hospitalization)
  Sender: FDA-Public Use
  Company Number: US-AVENTIS-200616763GDDC

PATIENT
  Age: 63 Year
  Sex: Male
  Weight: 65.7 kg

DRUGS (14)
  1. TAXOTERE [Suspect]
     Indication: SQUAMOUS CELL CARCINOMA
     Route: 042
     Dates: start: 20060612, end: 20060612
  2. CISPLATIN [Suspect]
     Indication: SQUAMOUS CELL CARCINOMA
     Route: 042
     Dates: start: 20060612, end: 20060612
  3. FLUOROURACIL [Suspect]
     Indication: SQUAMOUS CELL CARCINOMA
     Route: 042
     Dates: start: 20060612, end: 20060612
  4. ATENOLOL [Concomitant]
     Dosage: DOSE: UNK
  5. ATIVAN [Concomitant]
     Dosage: DOSE: UNK
  6. COLCHICINE [Concomitant]
     Dosage: DOSE: UNK
  7. KCL ELIXIR [Concomitant]
     Dosage: DOSE: UNK
  8. ROXICET [Concomitant]
     Dosage: DOSE: UNK
  9. LACTULOSE [Concomitant]
     Dosage: DOSE: UNK
  10. LEVAQUIN [Concomitant]
     Dosage: DOSE: UNK
  11. OMEPRAZOLE [Concomitant]
     Dosage: DOSE: UNK
  12. DECADRON [Concomitant]
     Dosage: DOSE: UNK
  13. REGLAN [Concomitant]
     Dosage: DOSE: UNK
  14. ZOFRAN [Concomitant]
     Dosage: DOSE: UNK

REACTIONS (5)
  - ANAEMIA [None]
  - ANOREXIA [None]
  - HYPOKALAEMIA [None]
  - HYPOMAGNESAEMIA [None]
  - WEIGHT DECREASED [None]
